FAERS Safety Report 7328250 (Version 5)
Quarter: 2015Q1

REPORT INFORMATION
  Report Type: Spontaneous
  Country: DE (occurrence: DE)
  Receive Date: 20100323
  Receipt Date: 20150206
  Transmission Date: 20150721
  Serious: Yes (Death, Life-Threatening, Hospitalization, Other)
  Sender: FDA-Public Use
  Company Number: DE-ROCHE-680084

PATIENT
  Age: 44 Year
  Sex: Female
  Weight: 57 kg

DRUGS (11)
  1. NEUPOGEN [Concomitant]
     Active Substance: FILGRASTIM
  2. NOVALGIN [Suspect]
     Active Substance: METAMIZOLE SODIUM
     Indication: PRODUCT USED FOR UNKNOWN INDICATION
     Route: 065
  3. H1 BLOCKER [Concomitant]
     Indication: PREMEDICATION
     Route: 065
     Dates: start: 20090916, end: 20090916
  4. CYCLOPHOSPHAMIDE. [Suspect]
     Active Substance: CYCLOPHOSPHAMIDE
     Indication: PRODUCT USED FOR UNKNOWN INDICATION
     Route: 065
  5. TAZOBAC [Suspect]
     Active Substance: PIPERACILLIN SODIUM\TAZOBACTAM SODIUM
     Indication: URINARY TRACT INFECTION
     Route: 065
     Dates: start: 201102
  6. MERONEM [Concomitant]
     Active Substance: MEROPENEM
  7. ARCOXIA [Concomitant]
     Active Substance: ETORICOXIB
  8. DECORTIN [Concomitant]
     Active Substance: PREDNISONE
     Route: 048
  9. VANCOMYCIN [Concomitant]
     Active Substance: VANCOMYCIN
  10. ROACTEMRA [Suspect]
     Active Substance: TOCILIZUMAB
     Indication: POLYARTHRITIS
     Dosage: GIVEN ON 16-SEP-2009 AND ON 12-OCT-2009
     Route: 042
     Dates: start: 20090916, end: 20091012
  11. MESNA. [Suspect]
     Active Substance: MESNA
     Indication: PRODUCT USED FOR UNKNOWN INDICATION
     Route: 065

REACTIONS (40)
  - Wheezing [Unknown]
  - Renal failure [Unknown]
  - Nephrotic syndrome [Not Recovered/Not Resolved]
  - Stomatitis [Unknown]
  - Aphasia [Unknown]
  - Facial paresis [Unknown]
  - Glomerulonephritis [Unknown]
  - Vomiting [Unknown]
  - Rash [Recovering/Resolving]
  - Anaphylactic shock [Recovered/Resolved]
  - Myocarditis [Unknown]
  - Decreased appetite [Unknown]
  - Bone marrow disorder [Not Recovered/Not Resolved]
  - Anaemia [Unknown]
  - Visual impairment [Unknown]
  - Dizziness [Unknown]
  - Viral infection [Unknown]
  - Parosmia [Unknown]
  - Hyperhidrosis [Unknown]
  - Nausea [Unknown]
  - Alopecia totalis [Not Recovered/Not Resolved]
  - Pancytopenia [Not Recovered/Not Resolved]
  - Proteinuria [Not Recovered/Not Resolved]
  - Oedema peripheral [Unknown]
  - Leukopenia [Unknown]
  - Diarrhoea [Unknown]
  - Depression [Unknown]
  - Urticaria [Unknown]
  - Toxic epidermal necrolysis [Fatal]
  - Face oedema [Unknown]
  - Nephrosclerosis [Unknown]
  - Dysgeusia [Unknown]
  - Insomnia [Unknown]
  - Urinary tract infection [Unknown]
  - Hypoalbuminaemia [Not Recovered/Not Resolved]
  - Cachexia [Unknown]
  - Bacterial infection [Unknown]
  - Respiratory failure [Not Recovered/Not Resolved]
  - Hypertension [Recovered/Resolved]
  - Migraine [Unknown]

NARRATIVE: CASE EVENT DATE: 200910
